FAERS Safety Report 19449035 (Version 5)
Quarter: 2021Q3

REPORT INFORMATION
  Report Type: Report from Study
  Country: CO (occurrence: CO)
  Receive Date: 20210622
  Receipt Date: 20210927
  Transmission Date: 20211014
  Serious: Yes (Hospitalization, Other)
  Sender: FDA-Public Use
  Company Number: NVSC2021CO131642

PATIENT
  Age: 57 Year
  Sex: Female
  Weight: 97 kg

DRUGS (4)
  1. AMLODIPINE [Concomitant]
     Active Substance: AMLODIPINE BESYLATE
     Indication: HYPERTENSION
     Dosage: 50 MG, QD (STARTED 6 YEARS AGO)
     Route: 048
  2. COSENTYX [Suspect]
     Active Substance: SECUKINUMAB
     Dosage: 300 MG, QMO
     Route: 058
     Dates: start: 202106
  3. LOSARTAN. [Suspect]
     Active Substance: LOSARTAN
     Indication: HYPERTENSION
     Dosage: 50 MG, QD (STARTED 6 YEARS AGO)
     Route: 048
  4. COSENTYX [Suspect]
     Active Substance: SECUKINUMAB
     Indication: PSORIASIS
     Dosage: 300 MG, QMO (STARTED 3 YEARS AGO)
     Route: 058
     Dates: start: 20190318

REACTIONS (12)
  - Upper limb fracture [Unknown]
  - Erythema [Unknown]
  - Skin burning sensation [Unknown]
  - Infection [Unknown]
  - Radius fracture [Unknown]
  - Finger deformity [Not Recovered/Not Resolved]
  - Fall [Unknown]
  - Pain [Not Recovered/Not Resolved]
  - Accident [Unknown]
  - Peripheral swelling [Unknown]
  - Malaise [Unknown]
  - Product supply issue [Unknown]

NARRATIVE: CASE EVENT DATE: 20210412
